FAERS Safety Report 4691111-4 (Version None)
Quarter: 2005Q2

REPORT INFORMATION
  Report Type: 
  Country: None (occurrence: None)
  Receive Date: 20050610
  Receipt Date: 20050602
  Transmission Date: 20051028
  Serious: Yes (Hospitalization, Other)
  Sender: FDA-Public Use
  Company Number: 2005083957

PATIENT
  Age: 84 Year
  Sex: Female
  Weight: 73 kg

DRUGS (8)
  1. DALTEPARIN (DALTEPARIN) [Suspect]
     Indication: DEEP VEIN THROMBOSIS
     Dosage: 15000 I.U. (1 D), SUBCUTANEOUS
     Route: 058
  2. TORSEMIDE (DORSEMIDE) [Concomitant]
  3. BISOPROLOL (BISOPROLOL) [Concomitant]
  4. HYDROCHOROTHIAZIDE (HYDROCHLOROTHIAZIDE) [Concomitant]
  5. ENALAPRIL MALEATE [Concomitant]
  6. GLIBORNURIDE 9GLIBORNURIDE0 [Concomitant]
  7. ALLOPURINLL (ALLOPURINOL) [Concomitant]
  8. . [Concomitant]

REACTIONS (3)
  - FLANK PAIN [None]
  - HAEMATOMA [None]
  - HAEMOGLOBIN DECREASED [None]
